FAERS Safety Report 10503992 (Version 2)
Quarter: 2014Q4

REPORT INFORMATION
  Report Type: Spontaneous
  Country: US (occurrence: US)
  Receive Date: 20141008
  Receipt Date: 20141008
  Transmission Date: 20150528
  Serious: No
  Sender: FDA-Public Use
  Company Number: US-BEH-2013035303

PATIENT
  Sex: Female
  Weight: 58 kg

DRUGS (13)
  1. DIPHENHYDRAMINE [Concomitant]
     Active Substance: DIPHENHYDRAMINE
  2. PRIVIGEN [Suspect]
     Active Substance: HUMAN IMMUNOGLOBULIN G
     Indication: IMMUNODEFICIENCY COMMON VARIABLE
     Dosage: OVER 2-3 HOURS
     Route: 042
     Dates: start: 20130402, end: 20130402
  3. HEPARIN [Concomitant]
     Active Substance: HEPARIN SODIUM
  4. EPIPEN [Concomitant]
     Active Substance: EPINEPHRINE
  5. VITAMIN D [Concomitant]
     Active Substance: CHOLECALCIFEROL
  6. FOLIC ACID. [Concomitant]
     Active Substance: FOLIC ACID
  7. SODIUM CHLORIDE. [Concomitant]
     Active Substance: SODIUM CHLORIDE
  8. PREDNISONE. [Concomitant]
     Active Substance: PREDNISONE
  9. FERROUS SULFATE [Concomitant]
     Active Substance: FERROUS SULFATE\FERROUS SULFATE, DRIED
  10. TYLENOL [Concomitant]
     Active Substance: ACETAMINOPHEN
  11. PRIVIGEN [Suspect]
     Active Substance: HUMAN IMMUNOGLOBULIN G
     Route: 042
  12. PHENERGAN [Concomitant]
     Active Substance: PROMETHAZINE HYDROCHLORIDE
  13. KEFLEX [Concomitant]
     Active Substance: CEPHALEXIN

REACTIONS (6)
  - Sinus congestion [Recovered/Resolved]
  - Headache [Recovered/Resolved]
  - Headache [Unknown]
  - Chest discomfort [Recovered/Resolved]
  - Fatigue [Unknown]
  - Dyspnoea [Recovered/Resolved]
